FAERS Safety Report 6018218-3 (Version None)
Quarter: 2008Q4

REPORT INFORMATION
  Report Type: 
  Country: None (occurrence: None)
  Receive Date: 20081223
  Receipt Date: 20081215
  Transmission Date: 20090506
  Serious: Yes (Death)
  Sender: FDA-Public Use
  Company Number: US-BAXTER-2008BH010987

PATIENT
  Sex: Male

DRUGS (4)
  1. HEPARIN SODIUM INJECTION [Suspect]
     Indication: THROMBOSIS PROPHYLAXIS
     Route: 010
     Dates: start: 20071206, end: 20071206
  2. HEPARIN SODIUM INJECTION [Suspect]
     Route: 010
     Dates: start: 20071208, end: 20071208
  3. HEPARIN SODIUM INJECTION [Suspect]
     Route: 010
     Dates: start: 20071211, end: 20071211
  4. HEPARIN SODIUM INJECTION [Suspect]
     Route: 010
     Dates: start: 20071213, end: 20071213

REACTIONS (1)
  - DEATH [None]
